FAERS Safety Report 17815516 (Version 1)
Quarter: 2020Q2

REPORT INFORMATION
  Report Type: Spontaneous
  Country: CA (occurrence: CA)
  Receive Date: 20200522
  Receipt Date: 20200522
  Transmission Date: 20200714
  Serious: Yes (Hospitalization)
  Sender: FDA-Public Use
  Company Number: CA-TEVA-2020-CA-1238508

PATIENT
  Age: 13 Year
  Sex: Male

DRUGS (2)
  1. DOXYCYCLINE. [Suspect]
     Active Substance: DOXYCYCLINE
     Indication: ACNE CONGLOBATA
     Dosage: 200 MILLIGRAM DAILY;
     Route: 048
  2. ISOTRETINOIN. [Suspect]
     Active Substance: ISOTRETINOIN
     Indication: ACNE CONGLOBATA
     Dosage: .5 MG/KG DAILY;
     Route: 048

REACTIONS (10)
  - Red blood cell sedimentation rate increased [Unknown]
  - Acne [Unknown]
  - Arthralgia [Unknown]
  - Leukocytosis [Unknown]
  - Transaminases increased [Unknown]
  - Neutrophilic dermatosis [Unknown]
  - Pyrexia [Unknown]
  - C-reactive protein increased [Unknown]
  - Myalgia [Unknown]
  - Skin ulcer [Unknown]
